FAERS Safety Report 16596254 (Version 3)
Quarter: 2019Q4

REPORT INFORMATION
  Report Type: Spontaneous
  Country: US (occurrence: US)
  Receive Date: 20190719
  Receipt Date: 20191001
  Transmission Date: 20200122
  Serious: No
  Sender: FDA-Public Use
  Company Number: US-BIOGEN-2017BI00465558

PATIENT
  Age: 14 Year
  Sex: Female

DRUGS (1)
  1. AVONEX [Suspect]
     Active Substance: INTERFERON BETA-1A
     Indication: MULTIPLE SCLEROSIS
     Route: 030
     Dates: start: 20170110

REACTIONS (2)
  - Product administered to patient of inappropriate age [Unknown]
  - Taste disorder [Unknown]

NARRATIVE: CASE EVENT DATE: 20170110
